FAERS Safety Report 6407638-0 (Version None)
Quarter: 2009Q4

REPORT INFORMATION
  Report Type: 
  Country: None (occurrence: None)
  Receive Date: 20091020
  Receipt Date: 20091008
  Transmission Date: 20100525
  Serious: Yes (Other)
  Sender: FDA-Public Use
  Company Number: PHHY2009IT44648

PATIENT
  Age: 74 Year
  Sex: Male

DRUGS (7)
  1. ZOLEDRONIC ACID [Suspect]
     Indication: METASTASES TO BONE
     Route: 042
  2. PAMIDRONATE DISODIUM [Suspect]
     Indication: METASTASES TO BONE
  3. MELPHALAN [Concomitant]
  4. PREDNISONE TAB [Concomitant]
  5. DEXAMETHASONE 0.5MG TAB [Concomitant]
  6. THALIDOMIDE [Concomitant]
  7. LEVOTHYROXINE SODIUM [Concomitant]

REACTIONS (1)
  - OSTEONECROSIS [None]
